FAERS Safety Report 8419678-0 (Version None)
Quarter: 2012Q2

REPORT INFORMATION
  Report Type: 
  Country: None (occurrence: None)
  Receive Date: 20120604
  Receipt Date: 20120604
  Transmission Date: 20120825
  Serious: Yes (Life-Threatening)
  Sender: FDA-Public Use
  Company Number: None

PATIENT
  Age: 44 Year
  Sex: Female
  Weight: 111.5849 kg

DRUGS (1)
  1. METOPROLOL TARTRATE [Suspect]
     Indication: HYPERTENSION
     Dosage: 50MG 2 TIMES A DAY PO
     Route: 048

REACTIONS (8)
  - ALOPECIA [None]
  - DIZZINESS [None]
  - OEDEMA PERIPHERAL [None]
  - POST PROCEDURAL COMPLICATION [None]
  - HEART RATE IRREGULAR [None]
  - HEART RATE INCREASED [None]
  - FEELING ABNORMAL [None]
  - VISION BLURRED [None]
